FAERS Safety Report 21388851 (Version 1)
Quarter: 2022Q3

REPORT INFORMATION
  Report Type: Spontaneous
  Country: US (occurrence: None)
  Receive Date: 20220927
  Receipt Date: 20220927
  Transmission Date: 20221027
  Serious: Yes (Hospitalization)
  Sender: FDA-Public Use
  Company Number: None

PATIENT
  Age: 54 Year
  Sex: Female

DRUGS (7)
  1. COSENTYX [Suspect]
     Active Substance: SECUKINUMAB
     Indication: Psoriasis
     Dosage: FREQUENCY : MONTHLY;?X2: INJECT 2 PENS (300 MG TOTAL) UNDER THE SKIN (SUBCUTANEOUS INJECTION) EVERY
     Route: 058
     Dates: start: 20220407
  2. AZITHROMYCIN TAB [Concomitant]
  3. CLOBETASOL SOL [Concomitant]
  4. HUMIRA [Concomitant]
     Active Substance: ADALIMUMAB
  5. HYDROCORT CRE [Concomitant]
  6. LOPERAMIDE CAP [Concomitant]
  7. PREDNISONE [Concomitant]
     Active Substance: PREDNISONE

REACTIONS (2)
  - Road traffic accident [None]
  - Therapy interrupted [None]

NARRATIVE: CASE EVENT DATE: 20220913
